FAERS Safety Report 7593727-4 (Version None)
Quarter: 2011Q3

REPORT INFORMATION
  Report Type: 
  Country: None (occurrence: None)
  Receive Date: 20110706
  Receipt Date: 20110622
  Transmission Date: 20111222
  Serious: Yes (Other)
  Sender: FDA-Public Use
  Company Number: PHHY2011US55530

PATIENT
  Sex: Female

DRUGS (12)
  1. RECLAST [Suspect]
     Dosage: UNK
     Route: 042
  2. FISH OIL [Concomitant]
  3. AMOXICILLIN [Concomitant]
     Dosage: 1 WEEK
  4. CALCIUM CARBONATE [Concomitant]
  5. LIPITOR [Concomitant]
  6. OXYCODONE HCL [Concomitant]
     Indication: BACK PAIN
  7. VICODIN [Concomitant]
  8. FEMARA [Concomitant]
     Dosage: ONCE A DAY FOR 5 YEARS
  9. PRIMAL DEFENSE [Concomitant]
  10. PREVACID [Concomitant]
  11. ACKERBERY [Concomitant]
  12. VOLTAREN [Concomitant]

REACTIONS (6)
  - BREAST CANCER [None]
  - BACK DISORDER [None]
  - ARTHROPATHY [None]
  - ORAL INFECTION [None]
  - BACK PAIN [None]
  - CATARACT [None]
